FAERS Safety Report 21967198 (Version 1)
Quarter: 2023Q1

REPORT INFORMATION
  Report Type: Spontaneous
  Country: US (occurrence: None)
  Receive Date: 20230207
  Receipt Date: 20230207
  Transmission Date: 20230418
  Serious: Yes (Other)
  Sender: FDA-Public Use
  Company Number: None

PATIENT
  Age: 74 Year
  Sex: Male
  Weight: 101 kg

DRUGS (1)
  1. CAPECITABINE [Suspect]
     Active Substance: CAPECITABINE
     Dosage: FREQUENCY : TWICE A DAY;?
     Route: 048
     Dates: end: 20230204

REACTIONS (7)
  - Flushing [None]
  - Flushing [None]
  - Throat tightness [None]
  - Limb discomfort [None]
  - Joint stiffness [None]
  - Musculoskeletal stiffness [None]
  - Musculoskeletal stiffness [None]

NARRATIVE: CASE EVENT DATE: 20221231
